FAERS Safety Report 8514386-X (Version None)
Quarter: 2012Q3

REPORT INFORMATION
  Report Type: 
  Country: None (occurrence: None)
  Receive Date: 20120717
  Receipt Date: 20120712
  Transmission Date: 20120928
  Serious: Yes (Hospitalization)
  Sender: FDA-Public Use
  Company Number: US-BAYER-2012-017530

PATIENT
  Age: 31 Year
  Sex: Female
  Weight: 97.506 kg

DRUGS (9)
  1. FLAREX [Concomitant]
     Dosage: 0.1 % INSTILL ONE DROP INTO BOTH EYES
     Route: 047
  2. IBUPROFEN [Concomitant]
     Dosage: 800 MG, UNK
  3. DOXEPIN [Concomitant]
     Dosage: 50 MG, AT NIGHT
  4. EFFEXOR [Concomitant]
  5. TRAZODONE HYDROCHLORIDE [Concomitant]
     Dosage: 50 MG, TABLETS
  6. LORATADINE [Concomitant]
     Indication: MULTIPLE ALLERGIES
     Dosage: UNK
     Dates: start: 20000101
  7. YASMIN [Suspect]
     Indication: POLYCYSTIC OVARIES
     Dosage: 1 TABLET PER DAY
     Dates: start: 20040501, end: 20050101
  8. IBUPROFEN [Concomitant]
     Dosage: 800 MG
     Dates: start: 19980101
  9. ZYRTEC [Concomitant]
     Dosage: 10 MG, DAILY

REACTIONS (4)
  - DEEP VEIN THROMBOSIS [None]
  - PAIN [None]
  - EMOTIONAL DISTRESS [None]
  - PULMONARY EMBOLISM [None]
